FAERS Safety Report 7074430-6 (Version None)
Quarter: 2010Q4

REPORT INFORMATION
  Report Type: 
  Country: None (occurrence: None)
  Receive Date: 20101029
  Receipt Date: 20101027
  Transmission Date: 20110411
  Serious: Yes (Death, Other)
  Sender: FDA-Public Use
  Company Number: DK-ROXANE LABORATORIES, INC.-2010-RO-01432RO

PATIENT
  Age: 53 Year
  Sex: Female

DRUGS (1)
  1. AZATHIOPRINE [Suspect]
     Indication: DERMATITIS ATOPIC

REACTIONS (2)
  - PNEUMONIA [None]
  - PNEUMOTHORAX [None]
